FAERS Safety Report 25362473 (Version 1)
Quarter: 2025Q2

REPORT INFORMATION
  Report Type: Spontaneous
  Country: SI (occurrence: SI)
  Receive Date: 20250527
  Receipt Date: 20250527
  Transmission Date: 20250717
  Serious: Yes (Other)
  Sender: BAYER HEALTHCARE PHARMACEUTICALS INC.
  Company Number: SI-BAYER-2025A068274

PATIENT
  Age: 78 Year
  Sex: Female
  Weight: 64 kg

DRUGS (16)
  1. KERENDIA [Suspect]
     Active Substance: FINERENONE
     Indication: Type 2 diabetes mellitus
  2. XARELTO [Concomitant]
     Active Substance: RIVAROXABAN
  3. JARDIANCE [Concomitant]
     Active Substance: EMPAGLIFLOZIN
  4. NEBIVOLOL [Concomitant]
     Active Substance: NEBIVOLOL
  5. JANUVIA [Concomitant]
     Active Substance: SITAGLIPTIN PHOSPHATE
  6. ADALAT [Concomitant]
     Active Substance: NIFEDIPINE
     Dosage: 60 MG, BID
  7. PERINDOPRIL [Concomitant]
     Active Substance: PERINDOPRIL
  8. PANTOPRAZOLE SODIUM [Concomitant]
     Active Substance: PANTOPRAZOLE SODIUM
  9. FERROUS SULFATE [Concomitant]
     Active Substance: FERROUS SULFATE
  10. CALCIUM CARBONATE [Concomitant]
     Active Substance: CALCIUM CARBONATE
  11. KERENDIA [Concomitant]
     Active Substance: FINERENONE
  12. CHOLECALCIFEROL [Concomitant]
     Active Substance: CHOLECALCIFEROL
  13. Artelac [Concomitant]
  14. Nitrofix [Concomitant]
     Dosage: 5 MG, QD
  15. INDAPAMIDE\PERINDOPRIL ERBUMINE [Concomitant]
     Active Substance: INDAPAMIDE\PERINDOPRIL ERBUMINE
  16. FUROSEMIDE\SPIRONOLACTONE [Concomitant]
     Active Substance: FUROSEMIDE\SPIRONOLACTONE

REACTIONS (3)
  - Blood pressure increased [None]
  - Blood pressure systolic increased [None]
  - Blood pressure systolic increased [None]

NARRATIVE: CASE EVENT DATE: 20240101
